FAERS Safety Report 11450229 (Version 1)
Quarter: 2015Q3

REPORT INFORMATION
  Report Type: Spontaneous
  Country: GB (occurrence: GB)
  Receive Date: 20150903
  Receipt Date: 20150903
  Transmission Date: 20151125
  Serious: Yes (Other)
  Sender: FDA-Public Use
  Company Number: GB-TEVA-588880ACC

PATIENT
  Age: 52 Year
  Sex: Male

DRUGS (3)
  1. TAMSULOSIN [Concomitant]
     Active Substance: TAMSULOSIN
  2. SIMVASTATIN. [Concomitant]
     Active Substance: SIMVASTATIN
  3. BOLAMYN SR [Suspect]
     Active Substance: METFORMIN HYDROCHLORIDE
     Indication: DIABETES MELLITUS
     Dosage: 4 GRAM DAILY;
     Route: 048
     Dates: start: 20150730, end: 20150811

REACTIONS (4)
  - Drug hypersensitivity [Recovered/Resolved]
  - Product substitution issue [Unknown]
  - Glycosylated haemoglobin increased [Recovering/Resolving]
  - Medication residue present [Recovered/Resolved]

NARRATIVE: CASE EVENT DATE: 20150731
